FAERS Safety Report 4854247-0 (Version None)
Quarter: 2005Q4

REPORT INFORMATION
  Report Type: 
  Country: None (occurrence: None)
  Receive Date: 20051213
  Receipt Date: 20051213
  Transmission Date: 20060501
  Serious: Yes (Life-Threatening, Hospitalization, Other)
  Sender: FDA-Public Use
  Company Number: None

PATIENT
  Age: 42 Year
  Sex: Male
  Weight: 86.1834 kg

DRUGS (1)
  1. SEROQUEL [Suspect]
     Dosage: 1 DOSE
     Route: 059
     Dates: start: 20030501

REACTIONS (15)
  - AMNESIA [None]
  - BURNING SENSATION [None]
  - CHEST PAIN [None]
  - COORDINATION ABNORMAL [None]
  - DISTURBANCE IN ATTENTION [None]
  - DIZZINESS [None]
  - DYSPNOEA [None]
  - JAW DISORDER [None]
  - NAUSEA [None]
  - PANIC ATTACK [None]
  - PARANOIA [None]
  - SENSORY DISTURBANCE [None]
  - SINUS DISORDER [None]
  - TINNITUS [None]
  - VISUAL ACUITY REDUCED [None]
